FAERS Safety Report 7138213-0 (Version None)
Quarter: 2010Q4

REPORT INFORMATION
  Report Type: 
  Country: None (occurrence: None)
  Receive Date: 20101103
  Receipt Date: 20100414
  Transmission Date: 20110411
  Serious: Yes (Other)
  Sender: FDA-Public Use
  Company Number: US-WYE-H14616210

PATIENT
  Age: 26 Year
  Sex: Female
  Weight: 84.44 kg

DRUGS (3)
  1. EFFEXOR XR [Suspect]
     Indication: DEPRESSION
     Dosage: 150 MG 1X PER 1 DAY
     Dates: start: 20060101
  2. EFFEXOR XR [Suspect]
     Indication: PANIC ATTACK
     Dosage: 150 MG 1X PER 1 DAY
     Dates: start: 20060101
  3. TRAMADOL (TRAMNDOL) [Concomitant]

REACTIONS (15)
  - BLOOD PRESSURE INCREASED [None]
  - DRUG INEFFECTIVE [None]
  - DRUG WITHDRAWAL SYNDROME [None]
  - DYSKINESIA [None]
  - FEELING OF BODY TEMPERATURE CHANGE [None]
  - HEADACHE [None]
  - HYPERACUSIS [None]
  - HYPERHIDROSIS [None]
  - MYDRIASIS [None]
  - NAUSEA [None]
  - NECK PAIN [None]
  - POLLAKIURIA [None]
  - TREMOR [None]
  - VOMITING [None]
  - WEIGHT INCREASED [None]
